FAERS Safety Report 22218203 (Version 1)
Quarter: 2023Q2

REPORT INFORMATION
  Report Type: Spontaneous
  Country: US (occurrence: US)
  Receive Date: 20230417
  Receipt Date: 20230417
  Transmission Date: 20230721
  Serious: No
  Sender: FDA-Public Use
  Company Number: US-drreddys-SPO/USA/23/0163350

PATIENT
  Age: 54 Year
  Sex: Female

DRUGS (1)
  1. HABITROL [Suspect]
     Active Substance: NICOTINE
     Indication: Tobacco user
     Route: 062
     Dates: start: 20230327, end: 20230331

REACTIONS (4)
  - Malaise [Unknown]
  - Rash [Unknown]
  - Drug ineffective [Unknown]
  - Product quality issue [Unknown]
